FAERS Safety Report 8847788 (Version 3)
Quarter: 2012Q4

REPORT INFORMATION
  Report Type: 
  Country: TR (occurrence: TR)
  Receive Date: 20121018
  Receipt Date: 20121213
  Transmission Date: 20130627
  Serious: Yes (Other)
  Sender: FDA-Public Use
  Company Number: TR-SANOFI-AVENTIS-2012SA074044

PATIENT
  Age: 29 Year
  Sex: Female
  Weight: 85 kg

DRUGS (5)
  1. CLEXANE [Suspect]
     Indication: THROMBOPHILIA
     Route: 058
     Dates: start: 201202
  2. CLEXANE [Suspect]
     Indication: THROMBOPHILIA
     Route: 058
     Dates: start: 201202
  3. CODEX [Suspect]
     Indication: THROMBOPHILIA
     Route: 030
  4. MULTIVITAMINS [Suspect]
     Indication: DRUG USE FOR UNKNOWN INDICATION
     Route: 048
  5. FERRO SANOL [Suspect]
     Indication: DRUG USE FOR UNKNOWN INDICATION
     Route: 048

REACTIONS (2)
  - Oligohydramnios [Unknown]
  - Exposure during pregnancy [Unknown]
